FAERS Safety Report 10447281 (Version 2)
Quarter: 2014Q4

REPORT INFORMATION
  Report Type: Spontaneous
  Country: JP (occurrence: None)
  Receive Date: 20140909
  Receipt Date: 20141124
  Transmission Date: 20150528
  Serious: Yes (Hospitalization, Disabling)
  Sender: FDA-Public Use
  Company Number: JP-017012

PATIENT
  Age: 79 Year
  Sex: Male
  Weight: 58 kg

DRUGS (7)
  1. DEGARELIX (GONAX) (120 MG, 80 MG) [Suspect]
     Active Substance: DEGARELIX
     Indication: PROSTATE CANCER
     Dosage: (240 MG 1X/4 WEEKS SUBCUTANEOUS)
     Route: 058
     Dates: start: 20130403, end: 20130403
  2. BEVACIZUMAB [Concomitant]
     Active Substance: BEVACIZUMAB
  3. ELPLAT [Concomitant]
     Active Substance: OXALIPLATIN
  4. LEVOFOLINATO DE CALCIO [Concomitant]
  5. FLUOROURACIL. [Concomitant]
     Active Substance: FLUOROURACIL
  6. LUTEINIZING HORMONE-RELEASING HORMONE [Concomitant]
     Active Substance: LUTEINIZING HORMONE
  7. LEUPLIN [Concomitant]
     Active Substance: LEUPROLIDE ACETATE

REACTIONS (1)
  - Haemorrhagic cerebral infarction [None]

NARRATIVE: CASE EVENT DATE: 20140526
